FAERS Safety Report 7280918-5 (Version None)
Quarter: 2010Q4

REPORT INFORMATION
  Report Type: 
  Country: None (occurrence: None)
  Receive Date: 20101221
  Receipt Date: 20091120
  Transmission Date: 20110411
  Serious: Yes (Other)
  Sender: FDA-Public Use
  Company Number: WAES 0911USA04164

PATIENT
  Age: 53 Year
  Sex: Male
  Weight: 101.1521 kg

DRUGS (3)
  1. JANUVIA [Suspect]
     Indication: TYPE 2 DIABETES MELLITUS
     Dosage: 100 MG/DAILY/PO
     Route: 048
     Dates: start: 20090817, end: 20091014
  2. ACTOS [Concomitant]
  3. METFORMIN [Concomitant]

REACTIONS (4)
  - CHOLELITHIASIS [None]
  - HEPATIC STEATOSIS [None]
  - PANCREATITIS [None]
  - RENAL MASS [None]
